FAERS Safety Report 9425500 (Version 1)
Quarter: 2013Q3

REPORT INFORMATION
  Report Type: Spontaneous
  Country: US (occurrence: US)
  Receive Date: 20130729
  Receipt Date: 20130729
  Transmission Date: 20140515
  Serious: No
  Sender: FDA-Public Use
  Company Number: US-009507513-1307USA012886

PATIENT
  Age: 35 Year
  Sex: Female

DRUGS (4)
  1. SAPHRIS [Suspect]
     Indication: BIPOLAR DISORDER
     Dosage: 10 MG, BID
     Route: 060
  2. SAPHRIS [Suspect]
     Dosage: 5 MG, BID
     Route: 060
  3. TEGRETOL [Concomitant]
  4. AMBIEN [Concomitant]

REACTIONS (1)
  - Oedema [Not Recovered/Not Resolved]
